FAERS Safety Report 7396493-0 (Version None)
Quarter: 2011Q2

REPORT INFORMATION
  Report Type: 
  Country: None (occurrence: None)
  Receive Date: 20110406
  Receipt Date: 20110329
  Transmission Date: 20111010
  Serious: Yes (Hospitalization)
  Sender: FDA-Public Use
  Company Number: FR-SANOFI-AVENTIS-2011SA007291

PATIENT
  Age: 77 Year
  Sex: Male

DRUGS (8)
  1. ANDROCUR [Interacting]
     Route: 048
  2. ATACAND [Suspect]
     Route: 048
     Dates: end: 20101218
  3. PREVISCAN [Concomitant]
     Route: 048
  4. ZOLADEX [Concomitant]
     Route: 058
  5. AMBROXOL [Concomitant]
     Route: 048
  6. MULTAQ [Interacting]
     Indication: ATRIAL FIBRILLATION
     Route: 048
     Dates: start: 20101130
  7. TAHOR [Interacting]
     Route: 048
  8. DITROPAN [Concomitant]
     Route: 048

REACTIONS (8)
  - DRUG INTERACTION [None]
  - PROTHROMBIN TIME RATIO DECREASED [None]
  - RENAL FAILURE [None]
  - VOMITING [None]
  - HEPATIC ENCEPHALOPATHY [None]
  - CHOLESTASIS [None]
  - CYTOLYTIC HEPATITIS [None]
  - DECREASED APPETITE [None]
